FAERS Safety Report 18262871 (Version 1)
Quarter: 2020Q3

REPORT INFORMATION
  Report Type: Spontaneous
  Country: US (occurrence: US)
  Receive Date: 20200911
  Receipt Date: 20200911
  Transmission Date: 20201103
  Serious: No
  Sender: FDA-Public Use
  Company Number: None

PATIENT
  Sex: Female

DRUGS (6)
  1. LEUCOVORIN. [Suspect]
     Active Substance: LEUCOVORIN
  2. APREPITANT. [Suspect]
     Active Substance: APREPITANT
     Dosage: ?          OTHER DOSE:APREPITANT;OTHER FREQUENCY:SEE BELOW;?
     Route: 048
  3. NEULASTA [Suspect]
     Active Substance: PEGFILGRASTIM
  4. FLUOROURACIL. [Suspect]
     Active Substance: FLUOROURACIL
  5. OXALIPLATIN. [Suspect]
     Active Substance: OXALIPLATIN
  6. APREPITANT. [Suspect]
     Active Substance: APREPITANT

REACTIONS (1)
  - Cerebrovascular accident [None]
